FAERS Safety Report 17243585 (Version 2)
Quarter: 2020Q1

REPORT INFORMATION
  Report Type: Spontaneous
  Country: US (occurrence: US)
  Receive Date: 20200107
  Receipt Date: 20200114
  Transmission Date: 20200409
  Serious: No
  Sender: FDA-Public Use
  Company Number: US-LEXICON PHARMACEUTICALS, INC-19-1606-01121

PATIENT
  Sex: Male

DRUGS (2)
  1. AFINITOR [Concomitant]
     Active Substance: EVEROLIMUS
  2. XERMELO [Suspect]
     Active Substance: TELOTRISTAT ETHYL
     Indication: NEUROENDOCRINE TUMOUR
     Dates: start: 201909, end: 2019

REACTIONS (5)
  - Malaise [Unknown]
  - Speech disorder [Unknown]
  - Confusional state [Unknown]
  - Peripheral swelling [Unknown]
  - Swelling face [Unknown]

NARRATIVE: CASE EVENT DATE: 2019
